FAERS Safety Report 17581782 (Version 1)
Quarter: 2020Q1

REPORT INFORMATION
  Report Type: Spontaneous
  Country: IT (occurrence: IT)
  Receive Date: 20200325
  Receipt Date: 20200325
  Transmission Date: 20200409
  Serious: Yes (Disabling)
  Sender: FDA-Public Use
  Company Number: IT-MYLANLABS-2020M1030683

PATIENT
  Age: 41 Year
  Sex: Female

DRUGS (8)
  1. ISOTRETINOIN. [Suspect]
     Active Substance: ISOTRETINOIN
     Indication: HYPERKERATOSIS FOLLICULARIS ET PARAFOLLICULARIS
  2. RIFAMPICIN [Concomitant]
     Active Substance: RIFAMPIN
     Indication: HIDRADENITIS
  3. ISOTRETINOIN. [Suspect]
     Active Substance: ISOTRETINOIN
     Indication: HIDRADENITIS
     Route: 048
  4. CLINDAMICINA NORMON [Concomitant]
     Indication: HIDRADENITIS
     Dosage: UNK UNK, CYCLE, SEVERAL CYCLES
     Route: 048
  5. TETRACYCLINE [Concomitant]
     Active Substance: TETRACYCLINE
     Indication: HIDRADENITIS
     Dosage: UNK UNK, CYCLE, SEVERAL CYCLES
  6. TETRACYCLINE [Concomitant]
     Active Substance: TETRACYCLINE
     Indication: HYPERKERATOSIS FOLLICULARIS ET PARAFOLLICULARIS
  7. RIFAMPICIN [Concomitant]
     Active Substance: RIFAMPIN
     Indication: HYPERKERATOSIS FOLLICULARIS ET PARAFOLLICULARIS
     Dosage: UNK UNK, CYCLE, SEVERAL CYCLES
  8. CLINDAMICINA NORMON [Concomitant]
     Indication: HYPERKERATOSIS FOLLICULARIS ET PARAFOLLICULARIS

REACTIONS (2)
  - Off label use [Unknown]
  - Drug ineffective [Unknown]
